FAERS Safety Report 6360627-7 (Version None)
Quarter: 2009Q3

REPORT INFORMATION
  Report Type: 
  Country: None (occurrence: None)
  Receive Date: 20090915
  Receipt Date: 20090903
  Transmission Date: 20100115
  Serious: Yes (Death)
  Sender: FDA-Public Use
  Company Number: GXKR2009US09942

PATIENT
  Age: 59 Year
  Sex: Female

DRUGS (12)
  1. VINCRISTINE [Suspect]
     Indication: NON-HODGKIN'S LYMPHOMA
  2. PREDNISONE [Suspect]
     Indication: NON-HODGKIN'S LYMPHOMA
  3. FLUDARABINE PHOSPHATE [Suspect]
     Dates: start: 20020101
  4. MITOXANTRONE [Suspect]
     Indication: NON-HODGKIN'S LYMPHOMA
     Dates: start: 20020101
  5. ETOPOSIDE [Suspect]
     Indication: NON-HODGKIN'S LYMPHOMA
     Dates: start: 20080601
  6. METHYLPREDNISOLONE [Suspect]
     Indication: NON-HODGKIN'S LYMPHOMA
     Dates: start: 20080601
  7. CYTARABINE [Suspect]
     Indication: NON-HODGKIN'S LYMPHOMA
     Dates: start: 20080601
  8. CISPLATIN [Suspect]
     Indication: NON-HODGKIN'S LYMPHOMA
     Dates: start: 20080601
  9. RITUXIMAB (RITUXIMAB) [Suspect]
     Indication: NON-HODGKIN'S LYMPHOMA
     Dosage: MAINTENANCE THERAPY (8 DOSES)
  10. CYCLOPHOSPHAMIDE [Suspect]
     Indication: NON-HODGKIN'S LYMPHOMA
  11. DEXAMETHASONE TAB [Suspect]
     Indication: NON-HODGKIN'S LYMPHOMA
     Dates: start: 20020101
  12. ZEVALIN [Suspect]
     Indication: NON-HODGKIN'S LYMPHOMA
     Dates: start: 20070101

REACTIONS (7)
  - ATAXIA [None]
  - CENTRAL NERVOUS SYSTEM LESION [None]
  - CEREBELLAR SYNDROME [None]
  - DYSARTHRIA [None]
  - HEAD TITUBATION [None]
  - NYSTAGMUS [None]
  - PROGRESSIVE MULTIFOCAL LEUKOENCEPHALOPATHY [None]
